FAERS Safety Report 4265054-4 (Version None)
Quarter: 2004Q1

REPORT INFORMATION
  Report Type: 
  Country: None (occurrence: None)
  Receive Date: 20040106
  Receipt Date: 20040106
  Transmission Date: 20041129
  Serious: Yes (Disabling)
  Sender: FDA-Public Use
  Company Number: None

PATIENT
  Age: 65 Year
  Sex: Male
  Weight: 81.6475 kg

DRUGS (1)
  1. LEVAQUIN [Suspect]
     Indication: SINUSITIS
     Dosage: 1-A DAY 10-DAYS
     Dates: start: 20031124, end: 20031203

REACTIONS (3)
  - DIFFICULTY IN WALKING [None]
  - FEELING ABNORMAL [None]
  - TENDON DISORDER [None]
